FAERS Safety Report 6079252-0 (Version None)
Quarter: 2009Q1

REPORT INFORMATION
  Report Type: 
  Country: None (occurrence: None)
  Receive Date: 20090216
  Receipt Date: 20090207
  Transmission Date: 20090719
  Serious: Yes (Other)
  Sender: FDA-Public Use
  Company Number: PHHY2009BR04547

PATIENT

DRUGS (6)
  1. FORASEQ [Suspect]
     Indication: BRONCHOPNEUMONIA
     Dosage: UNK
     Dates: start: 20080808
  2. FORASEQ [Suspect]
     Indication: BRONCHITIS
  3. SIMVASTATIN [Concomitant]
     Indication: BLOOD CHOLESTEROL
     Dosage: 1 TABLET/DAY
     Route: 048
  4. ATENOLOL [Concomitant]
     Indication: HYPERTENSION
     Dosage: UNK
     Route: 048
  5. ENALAPRIL [Concomitant]
     Indication: HYPERTENSION
     Dosage: UNK
     Route: 048
  6. METFORMIN HCL [Concomitant]
     Indication: DIABETES MELLITUS
     Dosage: UNK
     Route: 048

REACTIONS (3)
  - GASTRITIS [None]
  - MUSCLE SPASMS [None]
  - OESOPHAGEAL CANDIDIASIS [None]
